FAERS Safety Report 5578298-6 (Version None)
Quarter: 2007Q4

REPORT INFORMATION
  Report Type: 
  Country: None (occurrence: None)
  Receive Date: 20071130
  Receipt Date: 20070703
  Transmission Date: 20080405
  Serious: No
  Sender: FDA-Public Use
  Company Number: US200707000839

PATIENT
  Age: 64 Year
  Sex: Female

DRUGS (8)
  1. BYETTA [Suspect]
     Indication: TYPE 2 DIABETES MELLITUS
     Dosage: 5 UG, 2/D, SUBCUTANEOUS; 10 UG, 2/D, SUBCUTANEOUS
     Route: 058
  2. EXENATIDE 10MCG PEN, DISPOSABLE DEVICE (EXENATIDE PEN (10MCG)) PEN,DIS [Concomitant]
  3. ULTRAM (TRAMADOL HDYROCHLORIDE) [Concomitant]
  4. INSULIN (INSULIN) [Concomitant]
  5. NAPROXEN [Concomitant]
  6. METFORMIN HCL [Concomitant]
  7. SINGULAIR [Concomitant]
  8. PAXIL [Concomitant]

REACTIONS (1)
  - TREMOR [None]
